FAERS Safety Report 4495490-2 (Version None)
Quarter: 2004Q4

REPORT INFORMATION
  Report Type: 
  Country: None (occurrence: None)
  Receive Date: 20041108
  Receipt Date: 20041028
  Transmission Date: 20050328
  Serious: Yes (Hospitalization)
  Sender: FDA-Public Use
  Company Number: FR-JNJFOC-20041003330

PATIENT
  Age: 74 Year
  Sex: Female

DRUGS (6)
  1. REMINYL [Suspect]
     Route: 049
     Dates: start: 20040704, end: 20040712
  2. FENOFIBRATE [Suspect]
     Indication: DRUG USE FOR UNKNOWN INDICATION
     Route: 065
  3. CACIT [Suspect]
     Route: 065
  4. CACIT [Suspect]
     Indication: DRUG USE FOR UNKNOWN INDICATION
     Route: 065
  5. OXYBUTYNINE [Suspect]
     Indication: DRUG USE FOR UNKNOWN INDICATION
     Route: 065
  6. PRAXILENE [Suspect]
     Indication: DRUG USE FOR UNKNOWN INDICATION
     Route: 065

REACTIONS (2)
  - NECROTISING OESOPHAGITIS [None]
  - OESOPHAGEAL STENOSIS [None]
